FAERS Safety Report 21147618 (Version 2)
Quarter: 2022Q3

REPORT INFORMATION
  Report Type: Spontaneous
  Country: US (occurrence: US)
  Receive Date: 20220729
  Receipt Date: 20220804
  Transmission Date: 20221027
  Serious: Yes (Other)
  Sender: FDA-Public Use
  Company Number: US-drreddys-LIT/USA/22/0152757

PATIENT
  Age: 74 Year
  Sex: Male

DRUGS (10)
  1. DOCETAXEL [Suspect]
     Active Substance: DOCETAXEL
     Indication: Hormone-refractory prostate cancer
     Dosage: SYSTEMIC THERAPY
  2. DOCETAXEL [Suspect]
     Active Substance: DOCETAXEL
     Indication: Bone cancer metastatic
  3. OLAPARIB [Suspect]
     Active Substance: OLAPARIB
     Indication: Bone cancer metastatic
     Dosage: SYSTEMIC THERAPY
  4. OLAPARIB [Suspect]
     Active Substance: OLAPARIB
     Indication: Hormone-refractory prostate cancer
  5. RADIUM RA-223 DICHLORIDE [Suspect]
     Active Substance: RADIUM RA-223 DICHLORIDE
     Indication: Bone cancer metastatic
     Dosage: COMPLETED 6 CYCLES
  6. RADIUM RA-223 DICHLORIDE [Suspect]
     Active Substance: RADIUM RA-223 DICHLORIDE
     Indication: Hormone-refractory prostate cancer
     Dosage: SECOND COURSE, TWO WEEKS AFTER RECEIVING FIRST CYCLE
  7. ENZALUTAMIDE [Concomitant]
     Active Substance: ENZALUTAMIDE
     Indication: Bone cancer metastatic
  8. ENZALUTAMIDE [Concomitant]
     Active Substance: ENZALUTAMIDE
     Indication: Hormone-refractory prostate cancer
  9. APALUTAMIDE [Concomitant]
     Active Substance: APALUTAMIDE
     Indication: Bone cancer metastatic
  10. APALUTAMIDE [Concomitant]
     Active Substance: APALUTAMIDE
     Indication: Hormone-refractory prostate cancer

REACTIONS (2)
  - Iridocyclitis [Recovered/Resolved]
  - Hyphaema [Recovered/Resolved]
